FAERS Safety Report 8839150 (Version 1)
Quarter: 2012Q4

REPORT INFORMATION
  Report Type: Spontaneous
  Country: US (occurrence: None)
  Receive Date: 20121011
  Receipt Date: 20121011
  Transmission Date: 20130627
  Serious: Yes (Other)
  Sender: FDA-Public Use
  Company Number: None

PATIENT
  Age: 26 Month
  Sex: Female

DRUGS (1)
  1. MAGNESIUM GLUCONATE [Suspect]
     Indication: TRANSPLANT
     Route: 048
     Dates: start: 20110101, end: 20121009

REACTIONS (3)
  - Stomatitis [None]
  - Oral discomfort [None]
  - Product quality issue [None]
